FAERS Safety Report 15619348 (Version 3)
Quarter: 2019Q3

REPORT INFORMATION
  Report Type: Report from Study
  Country: NL (occurrence: NL)
  Receive Date: 20181115
  Receipt Date: 20190910
  Transmission Date: 20191004
  Serious: Yes (Death, Life-Threatening, Hospitalization)
  Sender: FDA-Public Use
  Company Number: NL-ACCORD-092163

PATIENT
  Age: 69 Year
  Sex: Male

DRUGS (10)
  1. PREDNISOLONE. [Suspect]
     Active Substance: PREDNISOLONE
     Indication: RHEUMATOID ARTHRITIS
     Dosage: 7.5MG, 2X/D
     Dates: start: 20180116, end: 20180831
  2. ALENDRONIC ACID [Concomitant]
     Active Substance: ALENDRONIC ACID
     Dosage: 1XPER WEEK
  3. METHOTREXATE. [Suspect]
     Active Substance: METHOTREXATE
     Indication: RHEUMATOID ARTHRITIS
     Dosage: 25MG, 1X/W
     Dates: start: 20180116, end: 20180612
  4. OMEPRAZOLE. [Concomitant]
     Active Substance: OMEPRAZOLE
     Dosage: 1DD1
  5. DICLOFENAC [Concomitant]
     Active Substance: DICLOFENAC
     Dosage: 2DD75MG
  6. TOCILIZUMAB. [Suspect]
     Active Substance: TOCILIZUMAB
     Indication: RHEUMATOID ARTHRITIS
     Dosage: 162MG, 1X/W
     Dates: start: 20160914, end: 20180612
  7. FOLIUMZUUR [Concomitant]
     Active Substance: FOLIC ACID
     Dosage: 1DD10MG
  8. CALCIUM/COLECALCIFEROL [Concomitant]
     Dosage: 1DD1
  9. CITALOPRAM [Concomitant]
     Active Substance: CITALOPRAM HYDROBROMIDE
     Dosage: 1DD20MG
  10. FENPROCOUMON [Concomitant]
     Active Substance: PHENPROCOUMON

REACTIONS (2)
  - JC virus CSF test positive [Unknown]
  - Progressive multifocal leukoencephalopathy [Recovering/Resolving]

NARRATIVE: CASE EVENT DATE: 20180612
